FAERS Safety Report 7155828-4 (Version None)
Quarter: 2010Q4

REPORT INFORMATION
  Report Type: 
  Country: None (occurrence: None)
  Receive Date: 20101123
  Receipt Date: 20101012
  Transmission Date: 20110411
  Serious: No
  Sender: FDA-Public Use
  Company Number: 010083

PATIENT
  Sex: Female

DRUGS (1)
  1. CIMZIA [Suspect]
     Indication: CROHN'S DISEASE
     Dosage: (400 MG PRE-FILLED SYRING SUBCUTANEOUS)
     Route: 058
     Dates: start: 20100103

REACTIONS (1)
  - CROHN'S DISEASE [None]
